FAERS Safety Report 19603756 (Version 1)
Quarter: 2021Q3

REPORT INFORMATION
  Report Type: Report from Study
  Country: PT (occurrence: PT)
  Receive Date: 20210724
  Receipt Date: 20210724
  Transmission Date: 20211014
  Serious: Yes (Death, Other)
  Sender: FDA-Public Use
  Company Number: PT-TAKEDA-2021TUS045298

PATIENT
  Age: 18 Year
  Sex: Male

DRUGS (6)
  1. IDURSULFASE [Suspect]
     Active Substance: IDURSULFASE
     Indication: MUCOPOLYSACCHARIDOSIS II
     Dosage: 0.42 MILLIGRAM/KILOGRAM, 1/WEEK
     Route: 042
     Dates: start: 20070829
  2. PULMICORT NASAL AQ [Concomitant]
     Dosage: UNK
     Route: 045
  3. BUDESONIDE. [Concomitant]
     Active Substance: BUDESONIDE
     Indication: RHINITIS
     Dosage: UNK
     Route: 045
  4. CETRIZINE [Concomitant]
     Active Substance: CETIRIZINE HYDROCHLORIDE
     Indication: RHINITIS
     Dosage: UNK
     Route: 048
     Dates: start: 20160408
  5. TRAMADOL. [Concomitant]
     Active Substance: TRAMADOL
     Indication: PAIN
     Dosage: UNK
     Route: 048
  6. RISPERIDONE ACCORD [Concomitant]
     Active Substance: RISPERIDONE
     Indication: PSYCHOMOTOR HYPERACTIVITY
     Dosage: UNK
     Route: 048
     Dates: start: 20100106

REACTIONS (1)
  - Cardiopulmonary failure [Fatal]
